FAERS Safety Report 7326245-9 (Version None)
Quarter: 2011Q1

REPORT INFORMATION
  Report Type: 
  Country: None (occurrence: None)
  Receive Date: 20110302
  Receipt Date: 20110224
  Transmission Date: 20110831
  Serious: Yes (Life-Threatening, Hospitalization)
  Sender: FDA-Public Use
  Company Number: A0915319A

PATIENT
  Age: 42 Year
  Sex: Female
  Weight: 56.1 kg

DRUGS (13)
  1. ACYCLOVIR [Concomitant]
  2. MEPRON [Concomitant]
  3. LENALIDOMIDE [Suspect]
     Indication: MULTIPLE MYELOMA
     Dosage: 25MG CYCLIC
     Route: 048
     Dates: start: 20101004
  4. MELPHALAN [Suspect]
     Indication: MULTIPLE MYELOMA
     Route: 042
     Dates: start: 20110116
  5. ATIVAN [Concomitant]
  6. DEXAMETHASONE [Suspect]
     Indication: MULTIPLE MYELOMA
  7. BACTRIM [Concomitant]
  8. FOLATE [Concomitant]
  9. VELCADE [Suspect]
     Indication: MULTIPLE MYELOMA
     Dosage: 1.3MGM2 CYCLIC
     Route: 042
     Dates: start: 20101004
  10. ZOFRAN [Concomitant]
  11. MAGNESIUM [Concomitant]
  12. MULTI-VITAMIN [Concomitant]
  13. ZYPREXA [Concomitant]

REACTIONS (4)
  - PANCYTOPENIA [None]
  - MUCOSAL INFLAMMATION [None]
  - NAUSEA [None]
  - VOMITING [None]
